FAERS Safety Report 6093612-3 (Version None)
Quarter: 2009Q1

REPORT INFORMATION
  Report Type: 
  Country: None (occurrence: None)
  Receive Date: 20090226
  Receipt Date: 20090218
  Transmission Date: 20090719
  Serious: Yes (Other)
  Sender: FDA-Public Use
  Company Number: PHHY2009AT05731

PATIENT
  Age: 79 Year
  Sex: Female
  Weight: 67 kg

DRUGS (7)
  1. TEGRETOL [Suspect]
     Dosage: 200 MG, BID
  2. COSAAR PLUS [Suspect]
     Dosage: 50MG/12.5MG, UNK
  3. COZAAR [Concomitant]
     Dosage: 50MG, UNK
  4. FEDIP - SLOW RELEASE [Concomitant]
     Dosage: 60 MG, UNK
  5. SELOKEN - SLOW RELEASE [Concomitant]
     Dosage: 47.5 MG, UNK
  6. DIAZEPAM [Concomitant]
     Dosage: 10 MG, UNK
  7. SIMVASTATIN [Concomitant]
     Dosage: 40 MG, UNK

REACTIONS (3)
  - GAIT DISTURBANCE [None]
  - HYPONATRAEMIA [None]
  - VERTIGO [None]
